FAERS Safety Report 14420267 (Version 1)
Quarter: 2018Q1

REPORT INFORMATION
  Report Type: Spontaneous
  Country: US (occurrence: US)
  Receive Date: 20180122
  Receipt Date: 20180122
  Transmission Date: 20180509
  Serious: No
  Sender: FDA-Public Use
  Company Number: US-ROCHE-1892024

PATIENT

DRUGS (5)
  1. VINCRISTINE [Concomitant]
     Active Substance: VINCRISTINE
  2. PREDNISONE. [Concomitant]
     Active Substance: PREDNISONE
  3. ADRIAMYCIN [Concomitant]
     Active Substance: DOXORUBICIN HYDROCHLORIDE
  4. RITUXAN [Suspect]
     Active Substance: RITUXIMAB
     Indication: PRODUCT USED FOR UNKNOWN INDICATION
     Route: 065
  5. CYTOXAN [Concomitant]
     Active Substance: CYCLOPHOSPHAMIDE

REACTIONS (1)
  - Pneumonitis [Unknown]
